FAERS Safety Report 9720855 (Version 1)
Quarter: 2013Q4

REPORT INFORMATION
  Report Type: Report from Study
  Country: AU (occurrence: AU)
  Receive Date: 20131129
  Receipt Date: 20131129
  Transmission Date: 20140711
  Serious: Yes (Other)
  Sender: FDA-Public Use
  Company Number: AU-SA-2013SA120009

PATIENT
  Age: 65 Year
  Sex: Female

DRUGS (8)
  1. ARAVA [Suspect]
     Indication: PRODUCT USED FOR UNKNOWN INDICATION
     Route: 048
     Dates: start: 20081009
  2. ARAVA [Suspect]
     Indication: PRODUCT USED FOR UNKNOWN INDICATION
     Route: 065
     Dates: start: 201303
  3. MOBIC [Concomitant]
  4. SOMAC [Concomitant]
  5. MAGNESIUM [Concomitant]
  6. CALTRATE [Concomitant]
  7. ANTIINFLAMMATORY/ANTIRHEUMATIC PRODUCTS [Concomitant]
  8. ALL OTHER THERAPEUTIC PRODUCTS [Concomitant]

REACTIONS (5)
  - Cataract [Recovering/Resolving]
  - Spinal fracture [Recovering/Resolving]
  - Sciatica [Recovering/Resolving]
  - Kidney infection [Recovering/Resolving]
  - Arrhythmia [Recovering/Resolving]
